FAERS Safety Report 5744748-5 (Version None)
Quarter: 2008Q2

REPORT INFORMATION
  Report Type: 
  Country: None (occurrence: None)
  Receive Date: 20080516
  Receipt Date: 20080512
  Transmission Date: 20081010
  Serious: Yes (Other)
  Sender: FDA-Public Use
  Company Number: CERZ-1000218

PATIENT
  Age: 52 Year
  Sex: Male
  Weight: 74 kg

DRUGS (6)
  1. CEREZYME [Suspect]
     Indication: GAUCHER'S DISEASE
     Dosage: 60 U, Q2W, INTRAVENOUS
     Route: 042
     Dates: start: 19960926
  2. NEXIUM [Concomitant]
  3. ADVIL [Concomitant]
  4. OXYCODONE AND ACETAMINOPHEN [Concomitant]
  5. PROSCAR [Concomitant]
  6. FOSAMAX [Concomitant]

REACTIONS (1)
  - LUNG NEOPLASM [None]
